FAERS Safety Report 5765672-8 (Version None)
Quarter: 2008Q2

REPORT INFORMATION
  Report Type: 
  Country: None (occurrence: None)
  Receive Date: 20080609
  Receipt Date: 20080609
  Transmission Date: 20081010
  Serious: No
  Sender: FDA-Public Use
  Company Number: None

PATIENT
  Age: 37 Year
  Sex: Female
  Weight: 48.9885 kg

DRUGS (1)
  1. PYRIDOSTIGMINE BROMIDE [Suspect]
     Indication: MYASTHENIA GRAVIS
     Dosage: 1 TABLET EVERY 3 HOURS PO
     Route: 048
     Dates: start: 20080401, end: 20080414

REACTIONS (1)
  - PHARMACEUTICAL PRODUCT COMPLAINT [None]
